FAERS Safety Report 6957018-4 (Version None)
Quarter: 2010Q3

REPORT INFORMATION
  Report Type: 
  Country: None (occurrence: None)
  Receive Date: 20100827
  Receipt Date: 20100827
  Transmission Date: 20110219
  Serious: Yes (Disabling)
  Sender: FDA-Public Use
  Company Number: None

PATIENT
  Age: 75 Year
  Sex: Male
  Weight: 79.3795 kg

DRUGS (1)
  1. DILAUDID [Suspect]
     Indication: PROCEDURAL PAIN
     Dosage: 1MG Q4H PRN PAIN IV 1X
     Route: 042
     Dates: start: 20100607, end: 20100607

REACTIONS (2)
  - LETHARGY [None]
  - SEDATION [None]
